FAERS Safety Report 20210739 (Version 3)
Quarter: 2023Q1

REPORT INFORMATION
  Report Type: Spontaneous
  Country: CA (occurrence: CA)
  Receive Date: 20211221
  Receipt Date: 20230201
  Transmission Date: 20230418
  Serious: Yes (Death, Hospitalization)
  Sender: FDA-Public Use
  Company Number: CA-NOVARTISPH-NVSC2021CA282257

PATIENT
  Age: 67 Year
  Sex: Female

DRUGS (15)
  1. COSENTYX [Suspect]
     Active Substance: SECUKINUMAB
     Indication: Psoriasis
     Dosage: 300 MG, QMO (1 EVERY 4 WEEKS)
     Route: 058
  2. COSENTYX [Suspect]
     Active Substance: SECUKINUMAB
     Dosage: 300 MG, QMO (1 EVERY 4 WEEKS)
     Route: 058
  3. COSENTYX [Suspect]
     Active Substance: SECUKINUMAB
     Dosage: 300 MG, QMO (1 EVERY 4 WEEKS)
     Route: 058
  4. COSENTYX [Suspect]
     Active Substance: SECUKINUMAB
     Dosage: 300 MG, QMO (1 EVERY 1 MONTHS)
     Route: 058
  5. COSENTYX [Suspect]
     Active Substance: SECUKINUMAB
     Dosage: 300 MG, QMO (1 EVERY 4 WEEKS)
     Route: 058
  6. COSENTYX [Suspect]
     Active Substance: SECUKINUMAB
     Dosage: 300 MG, QMO (1 EVERY 4 WEEKS)
     Route: 058
  7. COSENTYX [Suspect]
     Active Substance: SECUKINUMAB
     Dosage: 300 MG, QMO (1 EVERY 4 WEEKS)
     Route: 058
  8. COSENTYX [Suspect]
     Active Substance: SECUKINUMAB
     Dosage: 300 MG, QMO (1 EVERY 4 WEEKS)
     Route: 058
  9. FLUMIST QUADRIVALENT [Suspect]
     Active Substance: INFLUENZA A VIRUS A/CALIFORNIA/7/2009 (H1N1) LIVE(ATTENUATED) ANTIGEN\INFLUENZA A VIRUS A/TEXAS/50/2
     Indication: Product used for unknown indication
     Dosage: UNK PREFILLED, SINGLE-USE GLASS SPRAYER, SPRAY (NOT INHALATION)
     Route: 065
  10. ACITRETIN [Concomitant]
     Active Substance: ACITRETIN
     Indication: Product used for unknown indication
     Dosage: UNK
     Route: 048
  11. CYCLOSPORINE [Concomitant]
     Active Substance: CYCLOSPORINE
     Indication: Product used for unknown indication
     Dosage: UNK
     Route: 048
  12. METHOTREXATE [Concomitant]
     Active Substance: METHOTREXATE
     Indication: Product used for unknown indication
     Dosage: UNK
     Route: 048
  13. OTEZLA [Concomitant]
     Active Substance: APREMILAST
     Indication: Product used for unknown indication
     Dosage: UNK
     Route: 048
  14. SERTRALINE HYDROCHLORIDE [Concomitant]
     Active Substance: SERTRALINE HYDROCHLORIDE
     Indication: Product used for unknown indication
     Dosage: 75 MG, UNKNOWN
     Route: 065
  15. SERTRALINE HYDROCHLORIDE [Concomitant]
     Active Substance: SERTRALINE HYDROCHLORIDE
     Dosage: 50 MG, UNKNOWN
     Route: 065

REACTIONS (30)
  - Back pain [Fatal]
  - Depressed mood [Fatal]
  - Dyspnoea [Fatal]
  - Fall [Fatal]
  - Fatigue [Fatal]
  - Gait inability [Fatal]
  - Genital infection fungal [Fatal]
  - Immune system disorder [Fatal]
  - Migraine [Fatal]
  - Muscular weakness [Fatal]
  - Stress [Fatal]
  - Pain [Fatal]
  - Pain of skin [Fatal]
  - Limb discomfort [Fatal]
  - Tremor [Fatal]
  - Pneumonia [Fatal]
  - Productive cough [Fatal]
  - Nausea [Fatal]
  - Wheezing [Fatal]
  - COVID-19 [Fatal]
  - Psoriasis [Fatal]
  - Erythema [Fatal]
  - Scab [Fatal]
  - Pruritus [Fatal]
  - Skin discolouration [Fatal]
  - Burning sensation [Fatal]
  - Skin plaque [Fatal]
  - Sinusitis [Fatal]
  - Rhinorrhoea [Fatal]
  - Diarrhoea [Fatal]
